FAERS Safety Report 4725820-5 (Version None)
Quarter: 2005Q3

REPORT INFORMATION
  Report Type: 
  Country: None (occurrence: None)
  Receive Date: 20050727
  Receipt Date: 20050627
  Transmission Date: 20060218
  Serious: Yes (Life-Threatening, Hospitalization)
  Sender: FDA-Public Use
  Company Number: 2005SE03718

PATIENT
  Age: 20665 Day
  Sex: Female

DRUGS (2)
  1. ATACAND [Suspect]
     Indication: HYPERTENSION
     Route: 048
     Dates: start: 20050513, end: 20050616
  2. TRISEQUENS [Concomitant]
     Indication: OSTEOPOROSIS PROPHYLAXIS
     Route: 048

REACTIONS (6)
  - ALCOHOL USE [None]
  - BLOOD SODIUM DECREASED [None]
  - FALL [None]
  - HAEMATOMA [None]
  - RHABDOMYOLYSIS [None]
  - WOUND [None]
